FAERS Safety Report 23336701 (Version 2)
Quarter: 2024Q4

REPORT INFORMATION
  Report Type: Spontaneous
  Country: US (occurrence: US)
  Receive Date: 20231226
  Receipt Date: 20241104
  Transmission Date: 20250115
  Serious: Yes (Other)
  Sender: AMGEN
  Company Number: US-AMGEN-USASP2023226507

PATIENT

DRUGS (4)
  1. PANITUMUMAB [Suspect]
     Active Substance: PANITUMUMAB
     Indication: Colorectal cancer metastatic
     Dosage: UNK
     Route: 065
  2. BEVACIZUMAB [Suspect]
     Active Substance: BEVACIZUMAB
     Indication: Colorectal cancer metastatic
     Dosage: 5 MILLIGRAM/KILOGRAM (DAYS 1 AND 15 OF EACH 28-DAY TREATMENT CYCLE)
     Route: 042
  3. TIPIRACIL HYDROCHLORIDE\TRIFLURIDINE [Suspect]
     Active Substance: TIPIRACIL HYDROCHLORIDE\TRIFLURIDINE
     Indication: Colorectal cancer metastatic
     Dosage: 25 MILLIGRAM/SQ. METER, BID (DAYS 2-6 AND 16-20 OF EACH CYCLE) IN 4-WEEK CYCLES
     Route: 048
  4. IRINOTECAN [Suspect]
     Active Substance: IRINOTECAN
     Indication: Colorectal cancer metastatic
     Dosage: 180 MILLIGRAM/SQ. METER (DAY 1 AND 15)
     Route: 042

REACTIONS (30)
  - Colitis [Unknown]
  - Anaemia [Unknown]
  - Neutropenia [Unknown]
  - Thrombocytopenia [Unknown]
  - Diarrhoea [Unknown]
  - Fatigue [Unknown]
  - Abdominal pain [Unknown]
  - Decreased appetite [Unknown]
  - Febrile neutropenia [Unknown]
  - Stomatitis [Unknown]
  - Lymphocyte count decreased [Unknown]
  - Urinary tract infection [Unknown]
  - Nausea [Unknown]
  - Dehydration [Unknown]
  - Hypertension [Unknown]
  - Colorectal cancer metastatic [Unknown]
  - Proctitis [Unknown]
  - Hypotension [Unknown]
  - Dermatitis acneiform [Unknown]
  - Dizziness [Unknown]
  - Insomnia [Unknown]
  - Rhinorrhoea [Unknown]
  - Alopecia [Unknown]
  - Weight decreased [Unknown]
  - Dysgeusia [Unknown]
  - Proteinuria [Unknown]
  - Infusion related reaction [Unknown]
  - Constipation [Unknown]
  - Epistaxis [Unknown]
  - Vomiting [Unknown]
